FAERS Safety Report 5294577-4 (Version None)
Quarter: 2007Q2

REPORT INFORMATION
  Report Type: 
  Country: None (occurrence: None)
  Receive Date: 20070409
  Receipt Date: 20070409
  Transmission Date: 20071010
  Serious: Yes (Hospitalization)
  Sender: FDA-Public Use
  Company Number: None

PATIENT
  Sex: Female
  Weight: 70.3075 kg

DRUGS (1)
  1. ZELNORM [Suspect]
     Indication: CONSTIPATION
     Dosage: ONE TABLET TWICE DAILY PO
     Route: 048
     Dates: start: 20050501, end: 20070406

REACTIONS (5)
  - CHEST PAIN [None]
  - HEART RATE DECREASED [None]
  - LABYRINTHITIS [None]
  - SYNCOPE [None]
  - VERTIGO [None]
